FAERS Safety Report 5828086-8 (Version None)
Quarter: 2008Q3

REPORT INFORMATION
  Report Type: 
  Country: None (occurrence: None)
  Receive Date: 20080730
  Receipt Date: 20071129
  Transmission Date: 20090109
  Serious: No
  Sender: FDA-Public Use
  Company Number: A0696544A

PATIENT
  Age: 2 Week
  Sex: Male
  Weight: 1.8 kg

DRUGS (1)
  1. ZANTAC [Suspect]
     Indication: VOMITING
     Dosage: .13CC SINGLE DOSE
     Route: 042
     Dates: start: 20071128

REACTIONS (1)
  - MEDICATION ERROR [None]
